FAERS Safety Report 12549748 (Version 1)
Quarter: 2016Q3

REPORT INFORMATION
  Report Type: Spontaneous
  Country: TR (occurrence: TR)
  Receive Date: 20160712
  Receipt Date: 20160712
  Transmission Date: 20161109
  Serious: Yes (Hospitalization, Other)
  Sender: FDA-Public Use
  Company Number: TR-NEOS THERAPEUTICS, LP-2016NEO00011

PATIENT
  Age: 37 Year
  Sex: Female

DRUGS (5)
  1. CHLORPHENIRAMINE. [Suspect]
     Active Substance: CHLORPHENIRAMINE
     Indication: ALLERGY PROPHYLAXIS
     Dosage: 1 DOSAGE UNITS, ONCE
     Route: 042
  2. ANTIHYPERLIPIDEMICS [Concomitant]
     Route: 065
  3. CHLORPHENIRAMINE. [Suspect]
     Active Substance: CHLORPHENIRAMINE
     Dosage: 0.227 MG/ML, ONCE
     Route: 023
  4. BETA-BLOCKERS [Concomitant]
     Route: 065
  5. ACETYLSALICYLIC ACID [Concomitant]
     Active Substance: ASPIRIN
     Route: 065

REACTIONS (3)
  - Hypersensitivity [None]
  - Palpitations [None]
  - Anaphylactic reaction [Recovered/Resolved]
